FAERS Safety Report 12801017 (Version 1)
Quarter: 2016Q4

REPORT INFORMATION
  Report Type: Report from Study
  Country: US (occurrence: US)
  Receive Date: 20161003
  Receipt Date: 20161003
  Transmission Date: 20170207
  Serious: Yes (Other)
  Sender: FDA-Public Use
  Company Number: US-ROCHE-1835357

PATIENT
  Age: 65 Year
  Sex: Female
  Weight: 124 kg

DRUGS (5)
  1. BEVACIZUMAB [Suspect]
     Active Substance: BEVACIZUMAB
     Indication: ENDOMETRIAL CANCER
     Dosage: 18/AUG/2010, 08/SEP/2010, 29/SEP/2010, 20/OCT/2010, 10/NOV/2010,
     Route: 042
     Dates: start: 20100727
  2. IXABEPILONE [Suspect]
     Active Substance: IXABEPILONE
     Indication: ENDOMETRIAL CANCER
     Dosage: 18/AUG/2010, 08/SEP/2010, 29/SEP/2010, 20/OCT/2010, 10/NOV/2010,
     Route: 042
  3. IXABEPILONE [Suspect]
     Active Substance: IXABEPILONE
     Dosage: 01/DEC/2010, 22/DEC/2010, 12/JAN/2011, 03/FEB/2011, 23/FEB/2011, 16/MAR/2011
     Route: 042
  4. CARBOPLATIN. [Suspect]
     Active Substance: CARBOPLATIN
     Indication: ENDOMETRIAL CANCER
     Route: 042
  5. BEVACIZUMAB [Suspect]
     Active Substance: BEVACIZUMAB
     Dosage: 01/DEC/2010, 22/DEC/2010, 12/JAN/2011, 03/FEB/2011, 23/FEB/2011, 16/MAR/2011
     Route: 042
     Dates: start: 20100727

REACTIONS (8)
  - Syncope [Unknown]
  - White blood cell count decreased [Unknown]
  - Vomiting [Unknown]
  - Diarrhoea [Unknown]
  - Dehydration [Unknown]
  - Fatigue [Unknown]
  - Nausea [Unknown]
  - Neutrophil count decreased [Unknown]
